FAERS Safety Report 7964525-4 (Version None)
Quarter: 2011Q4

REPORT INFORMATION
  Report Type: 
  Country: None (occurrence: None)
  Receive Date: 20111208
  Receipt Date: 20111128
  Transmission Date: 20120403
  Serious: No
  Sender: FDA-Public Use
  Company Number: PHBS2006BR13442

PATIENT
  Age: 55 Year
  Sex: Female
  Weight: 88 kg

DRUGS (9)
  1. FUROSEMIDE [Interacting]
  2. POTASSIUM CHLORIDE [Concomitant]
     Dosage: 4 DF, UNK
     Route: 048
  3. FORMOTEROL FUMARATE [Concomitant]
     Indication: ASTHMA
  4. SLOW-K [Interacting]
     Dosage: 2.4 G/DAY
     Route: 048
     Dates: start: 20060831
  5. POTASSIUM CHLORIDE [Concomitant]
     Dosage: 2 DF, QOD
     Route: 048
  6. LASIX [Concomitant]
     Indication: HYPERTENSION
  7. SLOW-K [Suspect]
     Indication: ELECTROLYTE SUBSTITUTION THERAPY
     Dosage: 600 MG, TID
     Route: 048
  8. SLOW-K [Interacting]
     Dosage: 600 MG, BID (FOR MORE THAN A YEAR)
  9. PREDNISONE TAB [Interacting]

REACTIONS (3)
  - MUSCLE SPASMS [None]
  - DRUG INTERACTION [None]
  - DRUG INEFFECTIVE [None]
